FAERS Safety Report 25856561 (Version 2)
Quarter: 2025Q4

REPORT INFORMATION
  Report Type: Spontaneous
  Country: US (occurrence: None)
  Receive Date: 20250929
  Receipt Date: 20251027
  Transmission Date: 20260118
  Serious: Yes (Other)
  Sender: UCB
  Company Number: US-UCBSA-2025059108

PATIENT

DRUGS (2)
  1. CIMZIA [Suspect]
     Active Substance: CERTOLIZUMAB PEGOL
     Indication: Psoriatic arthropathy
     Dosage: 400 MILLIGRAM, EV 4 WEEKS
  2. CEPHALEXIN [Suspect]
     Active Substance: CEPHALEXIN
     Indication: Hidradenitis
     Dosage: UNK

REACTIONS (4)
  - Psoriatic arthropathy [Unknown]
  - Furuncle [Unknown]
  - Drug hypersensitivity [Unknown]
  - Drug ineffective [Unknown]
